FAERS Safety Report 6237588-4 (Version None)
Quarter: 2009Q2

REPORT INFORMATION
  Report Type: 
  Country: None (occurrence: None)
  Receive Date: 20090619
  Receipt Date: 20090612
  Transmission Date: 20091009
  Serious: Yes (Hospitalization)
  Sender: FDA-Public Use
  Company Number: US-GILEAD-2009-0022499

PATIENT
  Sex: Male
  Weight: 100.79 kg

DRUGS (18)
  1. LETAIRIS [Suspect]
     Indication: PULMONARY ARTERIAL HYPERTENSION
     Route: 048
     Dates: start: 20090409
  2. LASIX [Concomitant]
  3. METOLAZONE [Concomitant]
  4. ALDACTONE [Concomitant]
  5. IMDUR [Concomitant]
  6. PLAVIX [Concomitant]
  7. METOPROLOL SUCCINATE [Concomitant]
  8. COZAAR [Concomitant]
  9. SPIRIVA [Concomitant]
  10. ALBUTEROL [Concomitant]
     Indication: DYSPNOEA
  11. ALBUTEROL [Concomitant]
     Indication: WHEEZING
  12. SYMBICORT [Concomitant]
  13. POTASSIUM CHLORIDE [Concomitant]
  14. GLUCOVANCE [Concomitant]
  15. LANTUS [Concomitant]
  16. COLCHICINE [Concomitant]
     Indication: GOUT
  17. MOTRIN [Concomitant]
     Indication: PAIN
  18. ACETAMINOPHEN AND HYDROCODONE BITARTRATE [Concomitant]

REACTIONS (5)
  - ARTHRALGIA [None]
  - GOUT [None]
  - LEUKOCYTOSIS [None]
  - OEDEMA PERIPHERAL [None]
  - RENAL FAILURE ACUTE [None]
